FAERS Safety Report 4313648-X (Version None)
Quarter: 2004Q1

REPORT INFORMATION
  Report Type: 
  Country: None (occurrence: None)
  Receive Date: 20040304
  Receipt Date: 20040212
  Transmission Date: 20041129
  Serious: Yes (Other)
  Sender: FDA-Public Use
  Company Number: USA040259285

PATIENT
  Age: 77 Year
  Sex: Female
  Weight: 51 kg

DRUGS (3)
  1. FORTEO [Suspect]
     Indication: COMPRESSION FRACTURE
     Dates: start: 20040203, end: 20040211
  2. PREDNISONE [Concomitant]
  3. VITAMINSZETIA (EZETIMIBE) [Concomitant]

REACTIONS (10)
  - CHILLS [None]
  - DIARRHOEA [None]
  - DIZZINESS [None]
  - EATING DISORDER [None]
  - FALL [None]
  - FEELING COLD [None]
  - HYPERHIDROSIS [None]
  - NAUSEA [None]
  - SYNCOPE [None]
  - VOMITING [None]
